FAERS Safety Report 10768894 (Version 1)
Quarter: 2015Q1

REPORT INFORMATION
  Report Type: Spontaneous
  Country: JP (occurrence: None)
  Receive Date: 20150204
  Receipt Date: 20150204
  Transmission Date: 20150721
  Serious: Yes (Hospitalization)
  Sender: FDA-Public Use
  Company Number: CLINIGEN-003450

PATIENT
  Age: 18 Year
  Sex: Male

DRUGS (2)
  1. DENOSINE /00784201/ [Concomitant]
     Active Substance: GANCICLOVIR
  2. FOSCAVIR [Suspect]
     Active Substance: FOSCARNET SODIUM
     Indication: CYTOMEGALOVIRUS INFECTION
     Dosage: CHANGED TO 2880 MG QD
     Dates: start: 20140501

REACTIONS (1)
  - Pancytopenia [None]

NARRATIVE: CASE EVENT DATE: 20140713
